FAERS Safety Report 12188114 (Version 1)
Quarter: 2016Q1

REPORT INFORMATION
  Report Type: Spontaneous
  Country: US (occurrence: US)
  Receive Date: 20160317
  Receipt Date: 20160317
  Transmission Date: 20160526
  Serious: Yes (Other)
  Sender: FDA-Public Use
  Company Number: US-MEDTRONIC-1049257

PATIENT
  Age: 55 Year
  Sex: Female

DRUGS (4)
  1. OXYCODONE HYDROCHLORIDE. [Suspect]
     Active Substance: OXYCODONE HYDROCHLORIDE
     Route: 048
  2. DILAUDID [Suspect]
     Active Substance: HYDROMORPHONE HYDROCHLORIDE
     Route: 037
  3. BACLOFEN. [Suspect]
     Active Substance: BACLOFEN
     Route: 037
  4. BACLOFEN UNKNOWN (1500 MCG/ML) [Suspect]
     Active Substance: BACLOFEN
     Indication: MUSCLE SPASTICITY
     Route: 037

REACTIONS (7)
  - Pain [Unknown]
  - Bronchitis [Unknown]
  - Implant site warmth [Unknown]
  - Neoplasm malignant [Unknown]
  - Pulmonary oedema [Unknown]
  - Nasopharyngitis [Unknown]
  - Infusion site mass [Unknown]

NARRATIVE: CASE EVENT DATE: 20160308
